FAERS Safety Report 24769510 (Version 1)
Quarter: 2024Q4

REPORT INFORMATION
  Report Type: Spontaneous
  Country: US (occurrence: US)
  Receive Date: 20241224
  Receipt Date: 20241224
  Transmission Date: 20250115
  Serious: No
  Sender: BIOVITRUM
  Company Number: US-BIOVITRUM-2024-US-016356

PATIENT
  Age: 73 Year
  Sex: Female

DRUGS (1)
  1. VONJO [Suspect]
     Active Substance: PACRITINIB
     Indication: Product used for unknown indication
     Dosage: TWICE DAILY
     Route: 048
     Dates: start: 20241122

REACTIONS (1)
  - Cough [Unknown]
